FAERS Safety Report 16074022 (Version 1)
Quarter: 2019Q1

REPORT INFORMATION
  Report Type: Report from Study
  Country: None (occurrence: BR)
  Receive Date: 20190314
  Receipt Date: 20190314
  Transmission Date: 20190418
  Serious: Yes (Other)
  Sender: FDA-Public Use
  Company Number: BR-ABBVIE-19K-020-2698145-00

PATIENT
  Age: 48 Year
  Sex: Female
  Weight: 62 kg

DRUGS (3)
  1. HUMIRA [Suspect]
     Active Substance: ADALIMUMAB
     Indication: RHEUMATOID ARTHRITIS
     Route: 058
     Dates: start: 20180916, end: 201901
  2. METHOTREXATE. [Concomitant]
     Active Substance: METHOTREXATE
     Indication: RHEUMATOID ARTHRITIS
     Route: 065
  3. PREDNISONE. [Suspect]
     Active Substance: PREDNISONE
     Indication: RHEUMATOID ARTHRITIS
     Route: 065

REACTIONS (16)
  - Syncope [Unknown]
  - Malaise [Unknown]
  - Emotional disorder [Unknown]
  - Furuncle [Recovered/Resolved]
  - Arthralgia [Unknown]
  - Visual impairment [Unknown]
  - Blister [Unknown]
  - Pain [Unknown]
  - Immunodeficiency [Recovered/Resolved]
  - Joint warmth [Unknown]
  - Pruritus [Not Recovered/Not Resolved]
  - Blister [Recovered/Resolved]
  - Musculoskeletal pain [Unknown]
  - Skin discolouration [Unknown]
  - Injury [Unknown]
  - Pain in extremity [Unknown]

NARRATIVE: CASE EVENT DATE: 2019
